FAERS Safety Report 6185066-3 (Version None)
Quarter: 2009Q2

REPORT INFORMATION
  Report Type: 
  Country: None (occurrence: None)
  Receive Date: 20090511
  Receipt Date: 20090428
  Transmission Date: 20091009
  Serious: Yes (Other)
  Sender: FDA-Public Use
  Company Number: US-BAYER-200916600NA

PATIENT
  Age: 56 Year
  Sex: Female

DRUGS (8)
  1. ULTRAVIST 300 [Suspect]
     Indication: COMPUTERISED TOMOGRAM ABDOMEN
     Dosage: TOTAL DAILY DOSE: 100 ML  UNIT DOSE: 500 ML
     Route: 042
     Dates: start: 20090325, end: 20090325
  2. ATENOLOL [Concomitant]
  3. NIACIN [Concomitant]
  4. BENICAR [Concomitant]
     Dosage: TOTAL DAILY DOSE: 5 MG
  5. SIMVASTATIN [Concomitant]
  6. METFORMIN HCL [Concomitant]
  7. CALCIUM WITH VITAMIN D [Concomitant]
  8. READI-CAT [Concomitant]
     Indication: COMPUTERISED TOMOGRAM ABDOMEN
     Dosage: 1 HOUR  AND A HALF PRIOR TO CT
     Route: 048
     Dates: start: 20090325, end: 20090325

REACTIONS (7)
  - ASTHENIA [None]
  - DIZZINESS [None]
  - FEELING HOT [None]
  - LETHARGY [None]
  - MALAISE [None]
  - SWELLING FACE [None]
  - SWOLLEN TONGUE [None]
